FAERS Safety Report 11008533 (Version 1)
Quarter: 2015Q2

REPORT INFORMATION
  Report Type: Spontaneous
  Country: GB (occurrence: None)
  Receive Date: 20150408
  Receipt Date: 20150408
  Transmission Date: 20150821
  Serious: Yes (Hospitalization, Disabling)
  Sender: FDA-Public Use
  Company Number: FK201501604

PATIENT
  Age: 57 Year
  Sex: Female
  Weight: 87 kg

DRUGS (15)
  1. DEXAMETHASONE. [Concomitant]
     Active Substance: DEXAMETHASONE
  2. EPIRUBICIN (MANUFACTURER UNKNOWN) (EPIRUBICIN HYDROCHLORIDE) (EPIRUBICIN HYDROCHLORIDE) [Suspect]
     Active Substance: EPIRUBICIN
     Indication: CHEMOTHERAPY
     Dosage: 140 MG, 1 IN 3 WK
     Route: 042
     Dates: start: 20120613, end: 20121003
  3. CYCLOPHOSPHAMIDE (CYCLOPHOSPHAMIDE) (CYCLOPHOSPHAMIDE) [Suspect]
     Active Substance: CYCLOPHOSPHAMIDE
     Indication: BREAST CANCER
     Dosage: 900 MG, 1 IN 3 WK
     Route: 042
     Dates: start: 20120613, end: 20121003
  4. CYCLOPHOSPHAMIDE (CYCLOPHOSPHAMIDE) (CYCLOPHOSPHAMIDE) [Suspect]
     Active Substance: CYCLOPHOSPHAMIDE
     Indication: CHEMOTHERAPY
     Dosage: 900 MG, 1 IN 3 WK
     Route: 042
     Dates: start: 20120613, end: 20121003
  5. 5-FLUOROURACIL [Suspect]
     Active Substance: FLUOROURACIL
     Indication: CHEMOTHERAPY
     Dosage: 900 MG, 1 IN 3 WK
     Route: 042
     Dates: start: 20120613, end: 20121003
  6. APREPITANT. [Concomitant]
     Active Substance: APREPITANT
  7. EPIRUBICIN (MANUFACTURER UNKNOWN) (EPIRUBICIN HYDROCHLORIDE) (EPIRUBICIN HYDROCHLORIDE) [Suspect]
     Active Substance: EPIRUBICIN
     Indication: BREAST CANCER
     Dosage: 140 MG, 1 IN 3 WK
     Route: 042
     Dates: start: 20120613, end: 20121003
  8. ONDANSETRON [Concomitant]
     Active Substance: ONDANSETRON
  9. TRAMADOL [Concomitant]
     Active Substance: TRAMADOL
  10. 5-FLUOROURACIL [Suspect]
     Active Substance: FLUOROURACIL
     Indication: BREAST CANCER
     Dosage: 900 MG, 1 IN 3 WK
     Route: 042
     Dates: start: 20120613, end: 20121003
  11. OMEPRAZOLE. [Concomitant]
     Active Substance: OMEPRAZOLE
  12. PEGFILGRASTIM [Concomitant]
     Active Substance: PEGFILGRASTIM
  13. PARACETAMOL [Concomitant]
     Active Substance: ACETAMINOPHEN
  14. BENZYDAMINE [Concomitant]
     Active Substance: BENZYDAMINE
  15. DOMPERIDONE [Concomitant]
     Active Substance: DOMPERIDONE

REACTIONS (2)
  - Pulmonary fibrosis [None]
  - Dyspnoea [None]

NARRATIVE: CASE EVENT DATE: 20121023
